FAERS Safety Report 4350947-X (Version None)
Quarter: 2004Q2

REPORT INFORMATION
  Report Type: 
  Country: None (occurrence: None)
  Receive Date: 20040430
  Receipt Date: 20040420
  Transmission Date: 20050107
  Serious: Yes (Other)
  Sender: FDA-Public Use
  Company Number: NL-GLAXOSMITHKLINE-B0330593A

PATIENT
  Age: 59 Year
  Sex: Male

DRUGS (3)
  1. BUPROPION HYDROCHLORIDE [Suspect]
     Indication: EX-SMOKER
     Route: 048
     Dates: start: 20040409
  2. ASPIRIN [Concomitant]
  3. PERSANTIN [Concomitant]

REACTIONS (1)
  - COAGULOPATHY [None]
